FAERS Safety Report 25370740 (Version 2)
Quarter: 2025Q2

REPORT INFORMATION
  Report Type: Spontaneous
  Country: US (occurrence: US)
  Receive Date: 20250528
  Receipt Date: 20250529
  Transmission Date: 20250716
  Serious: Yes (Other)
  Sender: IOVANCE BIOTHERAPEUTICS
  Company Number: US-IOVANCE BIOTHERAPEUTICS, INC-2025IOV000080

PATIENT

DRUGS (5)
  1. AMTAGVI [Suspect]
     Active Substance: LIFILEUCEL
     Indication: Acral lentiginous melanoma
     Route: 042
  2. ALDESLEUKIN [Suspect]
     Active Substance: ALDESLEUKIN
     Indication: Acral lentiginous melanoma
     Route: 042
  3. ALDESLEUKIN [Suspect]
     Active Substance: ALDESLEUKIN
     Route: 042
  4. ALDESLEUKIN [Suspect]
     Active Substance: ALDESLEUKIN
     Route: 042
  5. INFLIXIMAB [Concomitant]
     Active Substance: INFLIXIMAB

REACTIONS (5)
  - Tachyarrhythmia [Recovered/Resolved]
  - Hallucination [Recovered/Resolved]
  - Chronic gastritis [Unknown]
  - Malignant neoplasm progression [Unknown]
  - Gastrointestinal disorder [Unknown]
